FAERS Safety Report 15207071 (Version 3)
Quarter: 2018Q3

REPORT INFORMATION
  Report Type: Report from Study
  Country: DE (occurrence: DE)
  Receive Date: 20180727
  Receipt Date: 20180928
  Transmission Date: 20181010
  Serious: No
  Sender: FDA-Public Use
  Company Number: DE-ROCHE-2130927

PATIENT
  Age: 67 Year
  Sex: Female

DRUGS (7)
  1. FAMPYRA [Concomitant]
     Active Substance: DALFAMPRIDINE
  2. TIZANIDIN [Concomitant]
     Active Substance: TIZANIDINE HYDROCHLORIDE
     Dosage: AS REQUIRED
     Route: 065
  3. OCREVUS [Suspect]
     Active Substance: OCRELIZUMAB
     Route: 042
     Dates: start: 20180411
  4. OCREVUS [Suspect]
     Active Substance: OCRELIZUMAB
     Indication: PRIMARY PROGRESSIVE MULTIPLE SCLEROSIS
     Route: 041
     Dates: start: 20180404
  5. SPASMOLYT [Concomitant]
  6. OCREVUS [Suspect]
     Active Substance: OCRELIZUMAB
     Route: 042
     Dates: start: 20180425
  7. TOLPERISONE [Concomitant]
     Active Substance: TOLPERISONE
     Dosage: 3X2
     Route: 065

REACTIONS (3)
  - Herpes virus infection [Recovered/Resolved]
  - Alopecia [Recovering/Resolving]
  - Ophthalmic herpes simplex [Recovered/Resolved]

NARRATIVE: CASE EVENT DATE: 20180518
